FAERS Safety Report 12485438 (Version 1)
Quarter: 2016Q2

REPORT INFORMATION
  Report Type: Spontaneous
  Country: US (occurrence: US)
  Receive Date: 20160621
  Receipt Date: 20160621
  Transmission Date: 20160815
  Serious: No
  Sender: FDA-Public Use
  Company Number: US-SA-2015SA104931

PATIENT
  Age: 24 Month
  Sex: Male
  Weight: 10.88 kg

DRUGS (7)
  1. EPIPEN [Concomitant]
     Active Substance: EPINEPHRINE
  2. SINGULAIR [Concomitant]
     Active Substance: MONTELUKAST SODIUM
  3. FLOVENT [Concomitant]
     Active Substance: FLUTICASONE PROPIONATE
     Dosage: DOSE:2 PUFF(S)
  4. HEPARIN [Concomitant]
     Active Substance: HEPARIN SODIUM
     Dosage: DOSE:10 INTERNATIONAL UNIT(S)/MILLILITRE
  5. CEREZYME [Suspect]
     Active Substance: IMIGLUCERASE
     Indication: LIPIDOSIS
     Dosage: DOSE:73.53 UNIT(S)/KILOGRAM BODYWEIGHT
     Route: 041
     Dates: start: 20150609
  6. AMOXICILLIN. [Concomitant]
     Active Substance: AMOXICILLIN
  7. PROAIR HFA [Concomitant]
     Active Substance: ALBUTEROL SULFATE
     Dosage: DOSE:2 PUFF(S)

REACTIONS (2)
  - Nasopharyngitis [Unknown]
  - Rash [Unknown]
